FAERS Safety Report 5924828-1 (Version None)
Quarter: 2008Q4

REPORT INFORMATION
  Report Type: 
  Country: None (occurrence: None)
  Receive Date: 20081020
  Receipt Date: 20081020
  Transmission Date: 20090506
  Serious: Yes (Hospitalization)
  Sender: FDA-Public Use
  Company Number: None

PATIENT
  Sex: Female
  Weight: 204.1187 kg

DRUGS (2)
  1. INVANZ [Suspect]
     Indication: CELLULITIS
     Dosage: 1GM QD IV
     Route: 042
     Dates: start: 20081010, end: 20081017
  2. INVANZ [Suspect]
     Indication: STAPHYLOCOCCAL INFECTION
     Dosage: 1GM QD IV
     Route: 042
     Dates: start: 20081010, end: 20081017

REACTIONS (1)
  - RASH PAPULAR [None]
